FAERS Safety Report 4309772-8 (Version None)
Quarter: 2004Q1

REPORT INFORMATION
  Report Type: 
  Country: None (occurrence: None)
  Receive Date: 20040301
  Receipt Date: 20040218
  Transmission Date: 20041129
  Serious: Yes (Hospitalization)
  Sender: FDA-Public Use
  Company Number: US-JNJFOC-20040204600

PATIENT
  Age: 70 Year
  Sex: Female
  Weight: 66 kg

DRUGS (7)
  1. ELMIRON [Suspect]
     Indication: RENAL DISORDER
     Dosage: 100 MG, 3 IN 1 DAY, ORAL
     Route: 048
     Dates: start: 20030801
  2. DILANTIN [Concomitant]
  3. LEVOTHROID [Concomitant]
  4. PRED FORTE (PREDNISOLONE ACETATE) [Concomitant]
  5. COSOPT (COSOPT) [Concomitant]
  6. LEXAPRO (ALL OTHER THERAPEUTIC PRODUCTS) [Concomitant]
  7. METHADONE HCL [Concomitant]

REACTIONS (6)
  - BLADDER DISORDER [None]
  - DEPRESSION [None]
  - IMPLANT SITE REACTION [None]
  - INFLAMMATION [None]
  - PAIN [None]
  - WEIGHT DECREASED [None]
